FAERS Safety Report 9322107 (Version 3)
Quarter: 2013Q3

REPORT INFORMATION
  Report Type: Spontaneous
  Country: US (occurrence: US)
  Receive Date: 20130531
  Receipt Date: 20130809
  Transmission Date: 20140515
  Serious: No
  Sender: FDA-Public Use
  Company Number: US-PFIZER INC-2013164501

PATIENT
  Age: 58 Year
  Sex: Female
  Weight: 94.33 kg

DRUGS (4)
  1. NEURONTIN [Suspect]
     Indication: NEUROPATHY PERIPHERAL
     Dosage: 600 MG, AT HS (2 OF 300MG)
     Dates: start: 2011
  2. EFFEXOR [Suspect]
     Indication: NEUROPATHY PERIPHERAL
     Dosage: 150 MG, 1X/DAY
     Dates: start: 201304
  3. AMITRIPTYLINE [Suspect]
     Indication: NEUROPATHY PERIPHERAL
     Dosage: UNK, 1X/DAY
     Dates: start: 201205
  4. LISINOPRIL W/HYDROCHLOROTHIAZIDE [Concomitant]
     Indication: HYPERTENSION
     Dosage: 10 (LISINOPRIL)/12.5 (HYDROCHLOROTHIAZIDE) MG, 1X/DAY

REACTIONS (20)
  - Off label use [Unknown]
  - Gait disturbance [Unknown]
  - Dysstasia [Unknown]
  - Feeling drunk [Unknown]
  - Drug ineffective for unapproved indication [Unknown]
  - Dizziness [Unknown]
  - Headache [Unknown]
  - Pain [Unknown]
  - Tremor [Unknown]
  - Phobia of driving [Unknown]
  - Tenderness [Unknown]
  - Paraesthesia [Unknown]
  - Arthralgia [Unknown]
  - Restless legs syndrome [Unknown]
  - Pain in extremity [Unknown]
  - Hypoaesthesia [Unknown]
  - Burning sensation [Unknown]
  - Muscle spasms [Unknown]
  - Muscle tightness [Unknown]
  - Peripheral coldness [Unknown]
